FAERS Safety Report 6254814-6 (Version None)
Quarter: 2009Q3

REPORT INFORMATION
  Report Type: 
  Country: None (occurrence: None)
  Receive Date: 20090702
  Receipt Date: 20090625
  Transmission Date: 20100115
  Serious: Yes (Other)
  Sender: FDA-Public Use
  Company Number: GB-PFIZER INC-2009232552

PATIENT

DRUGS (2)
  1. ISTIN [Suspect]
     Route: 048
  2. DEXAMETHASONE [Suspect]

REACTIONS (2)
  - DYSPHAGIA [None]
  - OESOPHAGEAL CANDIDIASIS [None]
